FAERS Safety Report 25929492 (Version 1)
Quarter: 2025Q4

REPORT INFORMATION
  Report Type: Spontaneous
  Country: GB (occurrence: GB)
  Receive Date: 20251016
  Receipt Date: 20251016
  Transmission Date: 20260118
  Serious: Yes (Hospitalization, Other)
  Sender: ACCORD
  Company Number: None

PATIENT
  Sex: Female

DRUGS (1)
  1. MONTELUKAST [Suspect]
     Active Substance: MONTELUKAST
     Indication: Asthma

REACTIONS (1)
  - Neuropsychological symptoms [Recovering/Resolving]

NARRATIVE: CASE EVENT DATE: 20251003
